FAERS Safety Report 23744588 (Version 1)
Quarter: 2024Q2

REPORT INFORMATION
  Report Type: Spontaneous
  Country: NL (occurrence: NL)
  Receive Date: 20240415
  Receipt Date: 20240415
  Transmission Date: 20240716
  Serious: Yes (Death, Life-Threatening, Hospitalization)
  Sender: FDA-Public Use
  Company Number: None

PATIENT
  Age: 59 Year
  Sex: Male

DRUGS (48)
  1. DEXAMETHASONE [Suspect]
     Active Substance: DEXAMETHASONE
     Indication: Product used for unknown indication
     Dosage: 6 MILLIGRAM
     Route: 065
     Dates: start: 20210610, end: 20210611
  2. DEXAMETHASONE [Suspect]
     Active Substance: DEXAMETHASONE
     Indication: Product used for unknown indication
     Route: 065
     Dates: start: 20210314, end: 20210322
  3. DEXAMETHASONE [Suspect]
     Active Substance: DEXAMETHASONE
     Indication: Product used for unknown indication
     Route: 048
     Dates: start: 20210607, end: 20210607
  4. DEXAMETHASONE [Suspect]
     Active Substance: DEXAMETHASONE
     Indication: Product used for unknown indication
     Route: 065
     Dates: start: 20210304, end: 20210308
  5. DEXAMETHASONE [Suspect]
     Active Substance: DEXAMETHASONE
     Indication: Product used for unknown indication
     Route: 065
     Dates: start: 20210220, end: 20210322
  6. DEXAMETHASONE [Suspect]
     Active Substance: DEXAMETHASONE
     Indication: Product used for unknown indication
     Route: 065
     Dates: start: 20210309, end: 20210313
  7. IRBESARTAN [Concomitant]
     Active Substance: IRBESARTAN
     Indication: Chronic obstructive pulmonary disease
     Route: 065
     Dates: start: 20210218, end: 20210613
  8. IRBESARTAN [Concomitant]
     Active Substance: IRBESARTAN
     Indication: Chronic obstructive pulmonary disease
     Route: 065
     Dates: start: 20210218, end: 20210613
  9. IRBESARTAN [Concomitant]
     Active Substance: IRBESARTAN
     Indication: Chronic obstructive pulmonary disease
     Route: 065
  10. IRBESARTAN [Concomitant]
     Active Substance: IRBESARTAN
     Indication: Chronic obstructive pulmonary disease
     Route: 065
  11. IRBESARTAN [Concomitant]
     Active Substance: IRBESARTAN
     Indication: Chronic obstructive pulmonary disease
     Route: 065
  12. Indacaterol/Glycopyrronium [Concomitant]
     Indication: Peripheral motor neuropathy
     Route: 065
  13. Indacaterol/Glycopyrronium [Concomitant]
     Indication: Peripheral motor neuropathy
     Route: 065
     Dates: start: 20210218
  14. Indacaterol/Glycopyrronium [Concomitant]
     Indication: Peripheral motor neuropathy
     Route: 065
  15. Indacaterol/Glycopyrronium [Concomitant]
     Indication: Peripheral motor neuropathy
     Route: 065
     Dates: start: 20210218
  16. Indacaterol/Glycopyrronium [Concomitant]
     Indication: Peripheral motor neuropathy
     Route: 065
  17. VALACYCLOVIR HYDROCHLORIDE [Concomitant]
     Active Substance: VALACYCLOVIR HYDROCHLORIDE
     Indication: Prophylaxis
     Route: 065
     Dates: start: 20210315, end: 20210610
  18. CARFILZOMIB [Suspect]
     Active Substance: CARFILZOMIB
     Indication: Plasma cell myeloma
     Route: 042
     Dates: start: 20210607, end: 20210607
  19. CLEMASTINE [Concomitant]
     Active Substance: CLEMASTINE
     Indication: Rash maculo-papular
     Route: 065
     Dates: start: 20210329, end: 20210329
  20. CLEMASTINE [Concomitant]
     Active Substance: CLEMASTINE
     Indication: Rash maculo-papular
     Route: 065
     Dates: start: 20210526
  21. CLEMASTINE [Concomitant]
     Active Substance: CLEMASTINE
     Indication: Rash maculo-papular
     Route: 065
     Dates: start: 20210406, end: 20210406
  22. CLEMASTINE [Concomitant]
     Active Substance: CLEMASTINE
     Indication: Rash maculo-papular
     Route: 065
     Dates: start: 20210322, end: 20210322
  23. CLEMASTINE [Concomitant]
     Active Substance: CLEMASTINE
     Indication: Rash maculo-papular
     Route: 065
     Dates: start: 20210315, end: 20210315
  24. CLEMASTINE [Concomitant]
     Active Substance: CLEMASTINE
     Indication: Rash maculo-papular
     Route: 065
     Dates: start: 20210412, end: 20210412
  25. LENALIDOMIDE [Suspect]
     Active Substance: LENALIDOMIDE
     Indication: Plasma cell myeloma
     Route: 048
     Dates: start: 20210607, end: 20210610
  26. GLYCEROPHOSPHORIC ACID [Concomitant]
     Indication: Product used for unknown indication
     Dosage: 20 MML, GLYCEROFOSFOR ACID
     Route: 065
     Dates: start: 20210612, end: 20210702
  27. ACETAMINOPHEN [Concomitant]
     Active Substance: ACETAMINOPHEN
     Indication: Prophylaxis
     Route: 065
     Dates: start: 20210218
  28. ACETAMINOPHEN [Concomitant]
     Active Substance: ACETAMINOPHEN
     Indication: Prophylaxis
     Route: 065
     Dates: start: 20210315, end: 20210315
  29. ACETAMINOPHEN [Concomitant]
     Active Substance: ACETAMINOPHEN
     Indication: Prophylaxis
     Route: 065
     Dates: start: 20210406, end: 20210406
  30. ACETAMINOPHEN [Concomitant]
     Active Substance: ACETAMINOPHEN
     Indication: Prophylaxis
     Route: 065
     Dates: start: 20210329, end: 20210329
  31. PANTOPRAZOLE [Concomitant]
     Active Substance: PANTOPRAZOLE
     Indication: Prophylaxis
     Route: 065
     Dates: start: 20210218, end: 20210613
  32. PANTOPRAZOLE [Concomitant]
     Active Substance: PANTOPRAZOLE
     Indication: Prophylaxis
     Route: 065
     Dates: start: 20210612, end: 20210708
  33. FLUTICASONE FUROATE [Concomitant]
     Active Substance: FLUTICASONE FUROATE
     Indication: Product used for unknown indication
     Route: 045
     Dates: start: 20210218
  34. FLUTICASONE FUROATE [Concomitant]
     Active Substance: FLUTICASONE FUROATE
     Indication: Product used for unknown indication
     Route: 045
     Dates: start: 20210610, end: 20210613
  35. TOCILIZUMAB [Concomitant]
     Active Substance: TOCILIZUMAB
     Indication: Product used for unknown indication
     Dosage: 800 MILLIGRAM
     Route: 065
     Dates: start: 20210610, end: 20210610
  36. CARBASPIRIN CALCIUM [Concomitant]
     Active Substance: CARBASPIRIN CALCIUM
     Indication: Prophylaxis
     Route: 065
     Dates: start: 20210315, end: 20210708
  37. OXYCODONE [Concomitant]
     Active Substance: OXYCODONE\OXYCODONE HYDROCHLORIDE
     Indication: Product used for unknown indication
     Route: 065
     Dates: start: 20210223, end: 20210303
  38. OXYCODONE [Concomitant]
     Active Substance: OXYCODONE\OXYCODONE HYDROCHLORIDE
     Indication: Product used for unknown indication
     Route: 065
     Dates: start: 20210223, end: 20210223
  39. OXYCODONE [Concomitant]
     Active Substance: OXYCODONE\OXYCODONE HYDROCHLORIDE
     Indication: Product used for unknown indication
     Route: 065
     Dates: start: 20210310, end: 20210520
  40. COTRIMOXAZOLE [Concomitant]
     Active Substance: SULFAMETHOXAZOLE\TRIMETHOPRIM
     Indication: Prophylaxis
     Route: 065
     Dates: start: 20210322, end: 20210523
  41. FUROSEMIDE [Concomitant]
     Active Substance: FUROSEMIDE
     Indication: Oedema
     Route: 065
     Dates: start: 20210329, end: 20210613
  42. FUROSEMIDE [Concomitant]
     Active Substance: FUROSEMIDE
     Indication: Oedema
     Route: 065
     Dates: start: 20210613, end: 20210614
  43. RASBURICASE [Concomitant]
     Active Substance: RASBURICASE
     Indication: Prophylaxis
     Route: 065
     Dates: start: 20210315, end: 20210315
  44. NADROPARIN [Concomitant]
     Active Substance: NADROPARIN
     Indication: Prophylaxis
     Route: 065
     Dates: start: 20210218, end: 20210224
  45. ZOLEDRONIC ACID [Concomitant]
     Active Substance: ZOLEDRONIC ACID
     Indication: Prophylaxis
     Route: 065
     Dates: start: 20210329
  46. ZOLEDRONIC ACID [Concomitant]
     Active Substance: ZOLEDRONIC ACID
     Indication: Prophylaxis
     Route: 065
     Dates: start: 20210315
  47. ISATUXIMAB [Suspect]
     Active Substance: ISATUXIMAB
     Indication: Plasma cell myeloma
     Route: 042
     Dates: start: 20210607, end: 20210607
  48. MAGNESIUM GLUCONATE [Concomitant]
     Active Substance: MAGNESIUM GLUCONATE
     Indication: Atrial fibrillation
     Route: 065
     Dates: start: 20210503, end: 20210613

REACTIONS (1)
  - SARS-CoV-2 sepsis [Fatal]

NARRATIVE: CASE EVENT DATE: 20210610
